FAERS Safety Report 19019829 (Version 1)
Quarter: 2021Q1

REPORT INFORMATION
  Report Type: Spontaneous
  Country: PL (occurrence: PL)
  Receive Date: 20210317
  Receipt Date: 20210317
  Transmission Date: 20210420
  Serious: Yes (Hospitalization)
  Sender: FDA-Public Use
  Company Number: PL-TEVA-2021-PL-1890599

PATIENT
  Age: 65 Year
  Sex: Female

DRUGS (22)
  1. RITUXIMAB. [Suspect]
     Active Substance: RITUXIMAB
     Dosage: R?CHOP REGIMEN; DOSE REDUCED
     Route: 065
     Dates: start: 201709, end: 201709
  2. DOXORUBICIN [Suspect]
     Active Substance: DOXORUBICIN
     Dosage: R?CHOP REGIMEN; DOSE REDUCED
     Route: 065
     Dates: start: 201709, end: 201709
  3. G?CSF [Concomitant]
     Active Substance: GRANULOCYTE COLONY-STIMULATING FACTOR NOS
     Indication: PROPHYLAXIS
     Route: 065
     Dates: start: 2017
  4. MYCOPHENOLATE MOFETIL. [Suspect]
     Active Substance: MYCOPHENOLATE MOFETIL
     Indication: IMMUNOSUPPRESSANT DRUG THERAPY
     Route: 065
     Dates: end: 201709
  5. COTRIMOXAZOLE [Concomitant]
     Active Substance: SULFAMETHOXAZOLE\TRIMETHOPRIM
     Indication: ANTIFUNGAL PROPHYLAXIS
     Route: 065
     Dates: start: 2017
  6. VINCRISTINE [Suspect]
     Active Substance: VINCRISTINE
     Indication: POST TRANSPLANT LYMPHOPROLIFERATIVE DISORDER
     Dosage: R?CHOP REGIMEN
     Route: 065
     Dates: start: 201709, end: 201709
  7. PREDNISONE. [Suspect]
     Active Substance: PREDNISONE
     Dosage: R?CHOP REGIMEN; DOSE REDUCED
     Route: 065
     Dates: start: 201709, end: 201709
  8. VINCRISTINE [Suspect]
     Active Substance: VINCRISTINE
     Dosage: R?CHOP REGIMEN; REDUCED BY 30%
     Route: 065
     Dates: start: 20180123, end: 20180301
  9. RITUXIMAB. [Suspect]
     Active Substance: RITUXIMAB
     Indication: POST TRANSPLANT LYMPHOPROLIFERATIVE DISORDER
     Dosage: R?CHOP REGIMEN
     Route: 065
     Dates: start: 201709, end: 201709
  10. CYCLOPHOSPHAMIDE. [Suspect]
     Active Substance: CYCLOPHOSPHAMIDE
     Indication: POST TRANSPLANT LYMPHOPROLIFERATIVE DISORDER
     Dosage: R?CHOP REGIMEN
     Route: 065
     Dates: start: 201709, end: 201709
  11. PREDNISONE. [Suspect]
     Active Substance: PREDNISONE
     Dosage: R?CHOP REGIMEN; REDUCED BY 30%
     Route: 065
     Dates: start: 20180123, end: 20180301
  12. MEROPENEM. [Concomitant]
     Active Substance: MEROPENEM
     Indication: ANTIBIOTIC THERAPY
     Dosage: 2 GRAM DAILY;
     Route: 065
  13. AMIKACIN. [Concomitant]
     Active Substance: AMIKACIN
     Indication: ANTIBIOTIC THERAPY
     Dosage: 500 MILLIGRAM DAILY;
     Route: 065
  14. DOXORUBICIN [Suspect]
     Active Substance: DOXORUBICIN
     Dosage: R?CHOP REGIMEN; REDUCED BY 30%
     Route: 065
     Dates: start: 20180123, end: 20180301
  15. RITUXIMAB. [Suspect]
     Active Substance: RITUXIMAB
     Dosage: R?CHOP REGIMEN; REDUCED BY 30%
     Route: 065
     Dates: start: 20180123, end: 20180301
  16. PREDNISONE. [Suspect]
     Active Substance: PREDNISONE
     Indication: POST TRANSPLANT LYMPHOPROLIFERATIVE DISORDER
     Dosage: R?CHOP REGIMEN
     Route: 065
     Dates: start: 201709, end: 201709
  17. COTRIMOXAZOLE [Concomitant]
     Active Substance: SULFAMETHOXAZOLE\TRIMETHOPRIM
     Dosage: 1920 MILLIGRAM DAILY;
     Route: 042
  18. CYCLOSPORINE A [Suspect]
     Active Substance: CYCLOSPORINE
     Indication: IMMUNOSUPPRESSANT DRUG THERAPY
     Route: 065
     Dates: end: 201801
  19. CYCLOPHOSPHAMIDE. [Suspect]
     Active Substance: CYCLOPHOSPHAMIDE
     Dosage: R?CHOP REGIMEN; REDUCED BY 30%
     Route: 065
     Dates: start: 20180123, end: 20180301
  20. DOXORUBICIN [Suspect]
     Active Substance: DOXORUBICIN
     Indication: POST TRANSPLANT LYMPHOPROLIFERATIVE DISORDER
     Dosage: R?CHOP REGIMEN
     Route: 065
     Dates: start: 201709, end: 201709
  21. VINCRISTINE [Suspect]
     Active Substance: VINCRISTINE
     Dosage: R?CHOP REGIMEN; DOSE REDUCED
     Route: 065
     Dates: start: 201709, end: 201709
  22. CYCLOPHOSPHAMIDE. [Suspect]
     Active Substance: CYCLOPHOSPHAMIDE
     Dosage: R?CHOP REGIMEN; DOSE REDUCED
     Route: 065
     Dates: start: 201709, end: 201709

REACTIONS (8)
  - Staphylococcal infection [Recovered/Resolved]
  - Oedema [Unknown]
  - Neutropenia [Not Recovered/Not Resolved]
  - Febrile neutropenia [Unknown]
  - Klebsiella infection [Recovered/Resolved]
  - Pancytopenia [Unknown]
  - Post transplant lymphoproliferative disorder [Recovered/Resolved]
  - Pneumocystis jirovecii infection [Recovered/Resolved]
